FAERS Safety Report 9736066 (Version 1)
Quarter: 2013Q4

REPORT INFORMATION
  Report Type: Spontaneous
  Country: CA (occurrence: CA)
  Receive Date: 20131206
  Receipt Date: 20131206
  Transmission Date: 20140711
  Serious: Yes (Hospitalization)
  Sender: FDA-Public Use
  Company Number: CA-GLAXOSMITHKLINE-A1051882A

PATIENT
  Age: 71 Year
  Sex: Male
  Weight: 86.4 kg

DRUGS (5)
  1. ADVAIR [Suspect]
     Indication: CHRONIC OBSTRUCTIVE PULMONARY DISEASE
     Dosage: 2PUFF TWICE PER DAY
     Route: 055
  2. ADVAIR [Suspect]
     Indication: CHRONIC OBSTRUCTIVE PULMONARY DISEASE
     Dosage: 1PUFF TWICE PER DAY
     Route: 055
  3. ROFLUMILAST [Concomitant]
  4. VENTOLIN [Concomitant]
  5. SPIRIVA [Concomitant]

REACTIONS (5)
  - Chronic obstructive pulmonary disease [Unknown]
  - Cough [Unknown]
  - Increased upper airway secretion [Unknown]
  - Dyspnoea [Unknown]
  - Pulmonary function test decreased [Unknown]
